FAERS Safety Report 7322902-9 (Version None)
Quarter: 2011Q1

REPORT INFORMATION
  Report Type: 
  Country: None (occurrence: None)
  Receive Date: 20110217
  Receipt Date: 20110208
  Transmission Date: 20110831
  Serious: Yes (Other)
  Sender: FDA-Public Use
  Company Number: LTI2007A00130

PATIENT
  Age: 57 Year
  Sex: Female

DRUGS (16)
  1. FENOFIBRATE [Concomitant]
  2. FORADIL [Concomitant]
  3. CARDIOCALM (PHENOBARBITAL, QUININE HYDROCHLORIDE, VALERIANA OFFICINALI [Concomitant]
  4. DIAMICRON (GLICLAZIDE) [Concomitant]
  5. FOSAVANCE (ALENDRONATE SODIUM) [Concomitant]
  6. SPECIAFOLDINE (FOLIC ACID) [Concomitant]
  7. ATHYMIL (MIANSERIN HYDROCHLORIDE) [Concomitant]
  8. DOGMATYL (SULPIRIDE) [Concomitant]
  9. RIVOTRIL (CLONAZEPAM) [Concomitant]
  10. EXTRANASE (BROMELAINS) [Concomitant]
  11. AIROMIR (SALBUTAMOL SULFATE) [Concomitant]
  12. ACTOS [Suspect]
     Indication: TYPE 2 DIABETES MELLITUS
     Dosage: 30 MG (30 MG,1 IN 1 D) ORAL
     Route: 048
     Dates: start: 20040601, end: 20070601
  13. QVAR [Concomitant]
  14. ZOXAN (FURAZOLIDONE, TINIDAZOLE) [Concomitant]
  15. KARDEGIC (ACETYLSALICYLATE LYSINE) [Concomitant]
  16. AVLOCARDYL (PROPRANOLOL) [Concomitant]

REACTIONS (12)
  - ULNA FRACTURE [None]
  - UPPER LIMB FRACTURE [None]
  - RADIUS FRACTURE [None]
  - HUNGER [None]
  - FALL [None]
  - BULIMIA NERVOSA [None]
  - JOINT DISLOCATION [None]
  - ARTHRALGIA [None]
  - WEIGHT INCREASED [None]
  - WRIST FRACTURE [None]
  - APPETITE DISORDER [None]
  - ASTHENIA [None]
